FAERS Safety Report 14188387 (Version 1)
Quarter: 2017Q4

REPORT INFORMATION
  Report Type: Spontaneous
  Country: US (occurrence: US)
  Receive Date: 20171114
  Receipt Date: 20171114
  Transmission Date: 20180321
  Serious: No
  Sender: FDA-Public Use
  Company Number: US-BAUSCH-BL-2017-027301

PATIENT
  Sex: Male

DRUGS (1)
  1. WALGREENS EYE ALLERGY RELIEF [Suspect]
     Active Substance: NAPHAZOLINE HYDROCHLORIDE\PHENIRAMINE MALEATE
     Indication: PRODUCT USED FOR UNKNOWN INDICATION
     Dosage: ACCIDENTLY SWALLOWED 2 DROPS
     Route: 048
     Dates: start: 20170913, end: 20170913

REACTIONS (3)
  - No adverse event [Unknown]
  - Accidental exposure to product [Unknown]
  - Expired product administered [Unknown]

NARRATIVE: CASE EVENT DATE: 20170913
